FAERS Safety Report 10119706 (Version 1)
Quarter: 2014Q2

REPORT INFORMATION
  Report Type: Spontaneous
  Country: US (occurrence: US)
  Receive Date: 20140425
  Receipt Date: 20140425
  Transmission Date: 20141212
  Serious: No
  Sender: FDA-Public Use
  Company Number: US-PFIZER INC-2014114267

PATIENT
  Age: 75 Year
  Sex: Female

DRUGS (2)
  1. LYRICA [Suspect]
     Indication: DIABETIC NEUROPATHY
     Dosage: UNK
  2. LYRICA [Suspect]
     Indication: NEURALGIA

REACTIONS (1)
  - Weight increased [Unknown]
